FAERS Safety Report 8613794-6 (Version None)
Quarter: 2012Q3

REPORT INFORMATION
  Report Type: 
  Country: None (occurrence: None)
  Receive Date: 20120823
  Receipt Date: 20120817
  Transmission Date: 20120928
  Serious: No
  Sender: FDA-Public Use
  Company Number: US-BIOGENIDEC-2011BI025643

PATIENT
  Age: 47 Year
  Sex: Female

DRUGS (2)
  1. AVONEX [Suspect]
     Indication: MULTIPLE SCLEROSIS
     Route: 030
     Dates: start: 20051007
  2. AVONEX [Suspect]
     Route: 030
     Dates: start: 20120809

REACTIONS (6)
  - FALL [None]
  - INFLUENZA LIKE ILLNESS [None]
  - NERVE COMPRESSION [None]
  - SCOLIOSIS [None]
  - PAIN [None]
  - PAIN IN EXTREMITY [None]
